FAERS Safety Report 7768334-0 (Version None)
Quarter: 2011Q3

REPORT INFORMATION
  Report Type: 
  Country: None (occurrence: None)
  Receive Date: 20110922
  Receipt Date: 20110309
  Transmission Date: 20111222
  Serious: No
  Sender: FDA-Public Use
  Company Number: US-ASTRAZENECA-2011SE13339

PATIENT
  Age: 39 Year
  Sex: Female

DRUGS (8)
  1. KLONOPIN [Concomitant]
  2. ZYRTEC [Concomitant]
  3. SEROQUEL [Suspect]
     Indication: MAJOR DEPRESSION
     Route: 048
     Dates: start: 20100301, end: 20110201
  4. ESTRACE [Concomitant]
  5. SEROQUEL [Suspect]
     Route: 048
  6. CYMBALTA [Concomitant]
  7. PRILOSEC [Concomitant]
  8. ZIAC [Concomitant]

REACTIONS (5)
  - DRUG DOSE OMISSION [None]
  - HEADACHE [None]
  - DRUG INEFFECTIVE [None]
  - MOOD SWINGS [None]
  - NAUSEA [None]
